FAERS Safety Report 7276158-6 (Version None)
Quarter: 2011Q1

REPORT INFORMATION
  Report Type: 
  Country: None (occurrence: None)
  Receive Date: 20110204
  Receipt Date: 20110125
  Transmission Date: 20110831
  Serious: Yes (Other)
  Sender: FDA-Public Use
  Company Number: PHHY2010US84842

PATIENT
  Sex: Female
  Weight: 82 kg

DRUGS (8)
  1. ADRIAMYCIN PFS [Concomitant]
  2. HYDROCHLOROTHIAZIDE [Concomitant]
     Indication: HYPERTENSION
     Dosage: 25 MG, QD
  3. TRIAM [Concomitant]
     Indication: HYPERTENSION
     Dosage: 37.5 MG, QD
     Route: 048
  4. TAXOLOL [Concomitant]
  5. FEMARA [Suspect]
     Indication: BREAST CANCER
     Dosage: 2.5 MG, UNK
     Route: 048
     Dates: start: 20100405
  6. GABAPENTIN [Concomitant]
     Indication: NEUROPATHY PERIPHERAL
     Dosage: 100 MG, QHS
     Route: 048
     Dates: start: 20100201
  7. M.V.I. [Concomitant]
     Dosage: UNK
     Route: 048
     Dates: start: 20040901
  8. SYNTHROID [Concomitant]
     Indication: HYPOTHYROIDISM
     Dosage: 0.137 MG, UNK
     Route: 048
     Dates: start: 20101001

REACTIONS (2)
  - BLOOD THYROID STIMULATING HORMONE DECREASED [None]
  - ALOPECIA [None]
